FAERS Safety Report 8470193-8 (Version None)
Quarter: 2012Q2

REPORT INFORMATION
  Report Type: 
  Country: None (occurrence: None)
  Receive Date: 20120621
  Receipt Date: 20120621
  Transmission Date: 20120825
  Serious: Yes (Other)
  Sender: FDA-Public Use
  Company Number: None

PATIENT
  Sex: Male

DRUGS (1)
  1. PRAVASTATIN [Suspect]
     Dates: start: 20080101, end: 20110101

REACTIONS (14)
  - HAEMOPTYSIS [None]
  - VISION BLURRED [None]
  - DISTURBANCE IN ATTENTION [None]
  - BACK PAIN [None]
  - VISUAL ACUITY REDUCED [None]
  - LUNG DISORDER [None]
  - DEPRESSED LEVEL OF CONSCIOUSNESS [None]
  - GAIT DISTURBANCE [None]
  - ABDOMINAL PAIN UPPER [None]
  - RENAL DISORDER [None]
  - OCULAR ICTERUS [None]
  - PARAESTHESIA [None]
  - ARTHRALGIA [None]
  - THINKING ABNORMAL [None]
